FAERS Safety Report 5313340-9 (Version None)
Quarter: 2007Q2

REPORT INFORMATION
  Report Type: 
  Country: None (occurrence: None)
  Receive Date: 20070501
  Receipt Date: 20070423
  Transmission Date: 20071010
  Serious: Yes (Other)
  Sender: FDA-Public Use
  Company Number: BR-ELI_LILLY_AND_COMPANY-BR200704003379

PATIENT
  Age: 39 Year
  Sex: Female
  Weight: 53 kg

DRUGS (3)
  1. GEMZAR [Suspect]
     Indication: OVARIAN CANCER
     Dosage: 1000 MG/M2, UNKNOWN
     Route: 065
     Dates: start: 20060602
  2. GEMZAR [Suspect]
     Dosage: UNK, UNKNOWN
     Route: 065
  3. OXALIPLATIN [Concomitant]
     Indication: OVARIAN CANCER
     Dosage: 85 MG/M2, UNKNOWN
     Route: 065
     Dates: start: 20060602, end: 20070119

REACTIONS (2)
  - NEUROPATHY PERIPHERAL [None]
  - PLATELET COUNT INCREASED [None]
